FAERS Safety Report 4777480-5 (Version None)
Quarter: 2005Q3

REPORT INFORMATION
  Report Type: 
  Country: None (occurrence: None)
  Receive Date: 20050915
  Receipt Date: 20050830
  Transmission Date: 20060218
  Serious: Yes (Hospitalization, Other)
  Sender: FDA-Public Use
  Company Number: USA0508105934

PATIENT
  Age: 79 Year
  Sex: Female

DRUGS (3)
  1. FORTEO [Suspect]
     Indication: OSTEOPOROSIS
     Dates: start: 20040201, end: 20050819
  2. MOBIC [Concomitant]
  3. BLOOD PRESSURE MEDICATION [Concomitant]

REACTIONS (7)
  - DISCOMFORT [None]
  - DRUG INEFFECTIVE [None]
  - INSOMNIA [None]
  - KNEE ARTHROPLASTY [None]
  - NECK PAIN [None]
  - PHARMACEUTICAL PRODUCT COMPLAINT [None]
  - THERAPY NON-RESPONDER [None]
